FAERS Safety Report 6760809-6 (Version None)
Quarter: 2010Q2

REPORT INFORMATION
  Report Type: 
  Country: None (occurrence: None)
  Receive Date: 20100607
  Receipt Date: 20100607
  Transmission Date: 20101027
  Serious: Yes (Hospitalization)
  Sender: FDA-Public Use
  Company Number: None

PATIENT
  Sex: Female
  Weight: 58.0604 kg

DRUGS (1)
  1. SEASONALE [Suspect]
     Indication: MENSTRUAL DISORDER
     Dates: start: 20100105, end: 20100307

REACTIONS (5)
  - INTRACRANIAL ANEURYSM [None]
  - MENSTRUAL DISORDER [None]
  - METRORRHAGIA [None]
  - RETINAL ANEURYSM [None]
  - SUBARACHNOID HAEMORRHAGE [None]
